FAERS Safety Report 4493763-0 (Version None)
Quarter: 2004Q4

REPORT INFORMATION
  Report Type: 
  Country: None (occurrence: None)
  Receive Date: 20041103
  Receipt Date: 20041103
  Transmission Date: 20050328
  Serious: Yes (Hospitalization)
  Sender: FDA-Public Use
  Company Number: None

PATIENT
  Age: 61 Year
  Sex: Male
  Weight: 72.5755 kg

DRUGS (2)
  1. PRAVACHOL [Suspect]
     Dosage: 40 MG DAILY
  2. LOVISTATIN 2004 STOPPED 8/10/04 [Suspect]
     Dosage: 40 MG DAILY

REACTIONS (1)
  - GLOBAL AMNESIA [None]
